FAERS Safety Report 6938188-0 (Version None)
Quarter: 2010Q3

REPORT INFORMATION
  Report Type: 
  Country: None (occurrence: None)
  Receive Date: 20100824
  Receipt Date: 20100819
  Transmission Date: 20110219
  Serious: Yes (Death, Other)
  Sender: FDA-Public Use
  Company Number: GB-NAPPMUNDI-GBR-2010-0006330

PATIENT
  Age: 37 Year
  Sex: Female

DRUGS (8)
  1. TARGINACT [Suspect]
     Indication: PRODUCT USED FOR UNKNOWN INDICATION
     Dosage: 20 MG, BID
     Dates: start: 20100113
  2. TARGINACT [Suspect]
     Dosage: 10 MG, BID
     Dates: start: 20100113
  3. DICLOFENAC [Concomitant]
     Dosage: 75 MG, BID
  4. PARACETAMOL [Concomitant]
     Dosage: 2 TABLET, QID
  5. NOZINAN                            /00038601/ [Concomitant]
     Dosage: 12.5 MG, DAILY
  6. METOCLOPRAMIDE [Concomitant]
     Dosage: 10 MG, TID
  7. CITALOPRAM HYDROBROMIDE [Concomitant]
     Dosage: 20 MG, DAILY
  8. ZOPICLONE [Concomitant]
     Dosage: 3.75 MG, DAILY

REACTIONS (3)
  - DIARRHOEA [None]
  - INTESTINAL OBSTRUCTION [None]
  - MALIGNANT NEOPLASM PROGRESSION [None]
